FAERS Safety Report 9924617 (Version 3)
Quarter: 2014Q2

REPORT INFORMATION
  Report Type: Spontaneous
  Country: US (occurrence: US)
  Receive Date: 20140226
  Receipt Date: 20140424
  Transmission Date: 20141212
  Serious: No
  Sender: FDA-Public Use
  Company Number: US-PFIZER INC-2014052052

PATIENT
  Sex: Female
  Weight: 47.17 kg

DRUGS (3)
  1. SUTENT [Suspect]
     Dosage: UNK
  2. CALCIUM [Concomitant]
     Dosage: UNK
  3. VITAMIN D [Concomitant]
     Dosage: UNK

REACTIONS (4)
  - Tumour marker increased [Unknown]
  - Dysgeusia [Unknown]
  - Liver function test abnormal [Unknown]
  - Blood chromogranin A [Unknown]
